FAERS Safety Report 4432735-9 (Version None)
Quarter: 2004Q3

REPORT INFORMATION
  Report Type: 
  Country: None (occurrence: None)
  Receive Date: 20040820
  Receipt Date: 20040730
  Transmission Date: 20050211
  Serious: Yes (Hospitalization, Other)
  Sender: FDA-Public Use
  Company Number: JP_040703813

PATIENT
  Age: 67 Year
  Sex: Male
  Weight: 52 kg

DRUGS (6)
  1. ONCOVIN [Suspect]
     Indication: LYMPHOMA
     Dosage: 2 MG OTHER
     Route: 050
     Dates: start: 20040603, end: 20040729
  2. CYCLOPHOSPHAMIDE [Concomitant]
  3. DOXORUBICIN HCL [Concomitant]
  4. PREDNISOLONE [Concomitant]
  5. RITUXAN [Concomitant]
  6. MESNA [Concomitant]

REACTIONS (6)
  - ABDOMINAL PAIN UPPER [None]
  - ANXIETY [None]
  - CYSTITIS HAEMORRHAGIC [None]
  - ILEUS PARALYTIC [None]
  - NAUSEA [None]
  - THIRST [None]
